FAERS Safety Report 4383883-3 (Version None)
Quarter: 2004Q2

REPORT INFORMATION
  Report Type: 
  Country: None (occurrence: None)
  Receive Date: 20040623
  Receipt Date: 20040623
  Transmission Date: 20050107
  Serious: Yes (Other)
  Sender: FDA-Public Use
  Company Number: None

PATIENT
  Age: 27 Year
  Sex: Female
  Weight: 55.7924 kg

DRUGS (1)
  1. ORTHO CYCLEN-28 [Suspect]
     Indication: CONTRACEPTION
     Dosage: ONE PO QD
     Route: 048

REACTIONS (2)
  - INCREASED APPETITE [None]
  - MOOD SWINGS [None]
